FAERS Safety Report 8586044-7 (Version None)
Quarter: 2012Q3

REPORT INFORMATION
  Report Type: 
  Country: None (occurrence: None)
  Receive Date: 20120810
  Receipt Date: 20120806
  Transmission Date: 20120928
  Serious: Yes (Hospitalization, Other)
  Sender: FDA-Public Use
  Company Number: GB-PFIZER INC-2010095957

PATIENT
  Age: 46 Year
  Sex: Female

DRUGS (2)
  1. LYRICA [Suspect]
     Indication: GENERALISED ANXIETY DISORDER
     Dosage: 100 MG, 2X/DAY
  2. LYRICA [Suspect]
     Indication: ANXIETY

REACTIONS (4)
  - THERAPEUTIC RESPONSE UNEXPECTED [None]
  - ABNORMAL DREAMS [None]
  - ARRHYTHMIA [None]
  - HYPOTENSION [None]
